FAERS Safety Report 19189164 (Version 4)
Quarter: 2021Q3

REPORT INFORMATION
  Report Type: Report from Study
  Country: US (occurrence: US)
  Receive Date: 20210428
  Receipt Date: 20210728
  Transmission Date: 20211014
  Serious: Yes (Hospitalization)
  Sender: FDA-Public Use
  Company Number: NVSC2021US095179

PATIENT
  Age: 56 Year
  Sex: Female

DRUGS (3)
  1. GILENYA [Suspect]
     Active Substance: FINGOLIMOD HYDROCHLORIDE
     Indication: MULTIPLE SCLEROSIS
     Dosage: 0.5 MG, QD
     Route: 048
     Dates: start: 20210312, end: 20210419
  2. AVONEX [Concomitant]
     Active Substance: INTERFERON BETA-1A
     Indication: PRODUCT USED FOR UNKNOWN INDICATION
     Dosage: UNK
     Route: 065
  3. ZOLOFT [Concomitant]
     Active Substance: SERTRALINE HYDROCHLORIDE
     Indication: PRODUCT USED FOR UNKNOWN INDICATION
     Dosage: UNK
     Route: 065
     Dates: start: 202103

REACTIONS (10)
  - Multiple sclerosis relapse [Unknown]
  - Cough [Unknown]
  - Oropharyngeal pain [Unknown]
  - Eye pain [Unknown]
  - Weight decreased [Unknown]
  - Ocular discomfort [Unknown]
  - Oropharyngeal candidiasis [Unknown]
  - Sensation of foreign body [Unknown]
  - Ageusia [Unknown]
  - Dry mouth [Unknown]

NARRATIVE: CASE EVENT DATE: 202011
